FAERS Safety Report 8784421 (Version 3)
Quarter: 2012Q4

REPORT INFORMATION
  Report Type: 
  Country: US (occurrence: US)
  Receive Date: 20120913
  Receipt Date: 20121018
  Transmission Date: 20130627
  Serious: Yes (Death)
  Sender: FDA-Public Use
  Company Number: US-PFIZER INC-2012222544

PATIENT
  Age: 58 Year
  Sex: Male

DRUGS (4)
  1. CAMPTOSAR [Suspect]
     Indication: PANCREATIC CARCINOMA
     Dosage: 340 mg, 180 mg/m2
     Route: 042
     Dates: start: 20120731, end: 20120815
  2. 5-FU [Concomitant]
     Indication: PANCREATIC CARCINOMA
     Dosage: 400mg/m2, followed by 2400mg/m2 over 46 hrs
     Route: 042
     Dates: start: 20120731, end: 20120815
  3. OXALIPLATIN [Concomitant]
     Indication: PANCREATIC CARCINOMA
     Dosage: 85 mg/m2, UNK
     Route: 042
     Dates: start: 20120731, end: 20120815
  4. LEVOLEUCOVORIN [Concomitant]
     Indication: PANCREATIC CARCINOMA
     Dosage: 200 mg/m2, UNK
     Dates: start: 20120731, end: 20120815

REACTIONS (2)
  - Disease progression [Fatal]
  - Pancreatic carcinoma [Fatal]
